FAERS Safety Report 9636801 (Version 2)
Quarter: 2013Q4

REPORT INFORMATION
  Report Type: Spontaneous
  Country: IT (occurrence: IT)
  Receive Date: 20131022
  Receipt Date: 20131115
  Transmission Date: 20140711
  Serious: Yes (Other)
  Sender: FDA-Public Use
  Company Number: IT-009507513-1310ITA008964

PATIENT
  Age: 74 Year
  Sex: Female

DRUGS (9)
  1. NEO-LOTAN PLUS 50 MG + 12,5 MG COMPRESSE RIVESTITE CON FILM [Suspect]
     Indication: HYPERTENSION
     Dosage: TOTAL DAILY DOSE:1 DOSE (UNIT), QD
     Route: 048
     Dates: start: 20130901, end: 20130920
  2. LASIX (FUROSEMIDE) [Suspect]
     Indication: HYPERTENSION
     Dosage: TOTAL DAILY DOSE: 2 DOSE (UNIT), FREQUENCY: TOTAL.
     Route: 048
     Dates: start: 20130920, end: 20130920
  3. LEXOTAN [Suspect]
     Indication: ANXIETY
     Dosage: TOTAL DAILY DOSE: 10 DROPS, FREQUENCY: TOTAL
     Route: 048
     Dates: start: 20130920, end: 20130920
  4. PANTOPRAZOLE [Concomitant]
     Route: 048
  5. ATORVASTATIN [Concomitant]
     Route: 048
  6. SERTRALINE HYDROCHLORIDE [Concomitant]
     Route: 048
  7. AMOXICILLIN [Concomitant]
     Route: 048
  8. TILDIEM [Concomitant]
     Route: 048
  9. RYTMONORM [Concomitant]
     Dosage: 1 DOSE (UNIT)
     Route: 048

REACTIONS (4)
  - Head injury [Recovering/Resolving]
  - Fracture [Recovering/Resolving]
  - Syncope [Recovering/Resolving]
  - Orthostatic hypotension [Recovering/Resolving]
